FAERS Safety Report 18731992 (Version 1)
Quarter: 2021Q1

REPORT INFORMATION
  Report Type: Spontaneous
  Country: CA (occurrence: CA)
  Receive Date: 20210112
  Receipt Date: 20210112
  Transmission Date: 20210419
  Serious: Yes (Other)
  Sender: FDA-Public Use
  Company Number: CA-TEVA-2021-CA-1866467

PATIENT
  Sex: Female

DRUGS (2)
  1. FENTANYL. [Suspect]
     Active Substance: FENTANYL
     Indication: SEDATIVE THERAPY
  2. MIDAZOLAM INJECTION [Concomitant]
     Active Substance: MIDAZOLAM HYDROCHLORIDE

REACTIONS (2)
  - Unresponsive to stimuli [Unknown]
  - Blood pressure decreased [Unknown]
